FAERS Safety Report 7604020-5 (Version None)
Quarter: 2011Q3

REPORT INFORMATION
  Report Type: 
  Country: None (occurrence: None)
  Receive Date: 20110712
  Receipt Date: 20110702
  Transmission Date: 20111222
  Serious: Yes (Hospitalization)
  Sender: FDA-Public Use
  Company Number: US-ROCHE-788115

PATIENT
  Sex: Female

DRUGS (1)
  1. PEGASYS [Suspect]
     Route: 058
     Dates: start: 20110701

REACTIONS (4)
  - MULTI-ORGAN FAILURE [None]
  - OEDEMA [None]
  - HEADACHE [None]
  - DEPRESSION [None]
